FAERS Safety Report 19747969 (Version 1)
Quarter: 2021Q3

REPORT INFORMATION
  Report Type: Other
  Country: CH (occurrence: CH)
  Receive Date: 20210825
  Receipt Date: 20210825
  Transmission Date: 20211014
  Serious: Yes (Other)
  Sender: FDA-Public Use
  Company Number: CH-B.BRAUN MEDICAL INC.-2115665

PATIENT
  Sex: Male
  Weight: 2.08 kg

DRUGS (2)
  1. HEPARIN SODIUM IN DEXTROSE [Suspect]
     Active Substance: HEPARIN SODIUM
     Indication: CEREBRAL VENOUS SINUS THROMBOSIS
     Route: 042
  2. ANTITHROMBIN III [Concomitant]
     Active Substance: ANTITHROMBIN III HUMAN

REACTIONS (1)
  - Drug ineffective [None]
